FAERS Safety Report 11009161 (Version 1)
Quarter: 2015Q2

REPORT INFORMATION
  Report Type: Spontaneous
  Country: US (occurrence: None)
  Receive Date: 20150409
  Receipt Date: 20150409
  Transmission Date: 20150821
  Serious: Yes (Hospitalization)
  Sender: FDA-Public Use
  Company Number: None

PATIENT
  Age: 60 Year
  Sex: Male

DRUGS (1)
  1. LITHIUM. [Suspect]
     Active Substance: LITHIUM
     Indication: SCHIZOAFFECTIVE DISORDER
     Route: 048
     Dates: start: 20120525, end: 20150316

REACTIONS (8)
  - Orthostatic hypotension [None]
  - Sluggishness [None]
  - Gastric disorder [None]
  - Tremor [None]
  - Antipsychotic drug level above therapeutic [None]
  - Confusional state [None]
  - Drooling [None]
  - Toxicity to various agents [None]

NARRATIVE: CASE EVENT DATE: 20150317
